FAERS Safety Report 4524914-7 (Version None)
Quarter: 2004Q4

REPORT INFORMATION
  Report Type: 
  Country: None (occurrence: None)
  Receive Date: 20041117
  Receipt Date: 20030807
  Transmission Date: 20050328
  Serious: Yes (Other)
  Sender: FDA-Public Use
  Company Number: C2003-0660.02

PATIENT
  Sex: Female
  Weight: 158.759 kg

DRUGS (8)
  1. CLOZAPINE [Suspect]
     Indication: SCHIZOPHRENIA
     Dosage: 250 MG Q HS, ORAL
     Route: 048
     Dates: start: 20000101
  2. CLOZAPINE [Suspect]
     Indication: SUICIDAL IDEATION
     Dosage: 250 MG Q HS, ORAL
     Route: 048
     Dates: start: 20000101
  3. TOPIRMATE [Concomitant]
  4. LAMOTRIGINE [Concomitant]
  5. LEVOTHYROXINE SODIUM [Concomitant]
  6. BUPROPION HCL [Concomitant]
  7. METHYLPHENIDATE [Concomitant]
  8. ESCITALOPRAM [Concomitant]

REACTIONS (1)
  - SEDATION [None]
